FAERS Safety Report 5649166-6 (Version None)
Quarter: 2008Q1

REPORT INFORMATION
  Report Type: 
  Country: None (occurrence: None)
  Receive Date: 20080131
  Receipt Date: 20071128
  Transmission Date: 20080703
  Serious: No
  Sender: FDA-Public Use
  Company Number: US200711006659

PATIENT
  Age: 64 Year
  Sex: Male

DRUGS (5)
  1. BYETTA [Suspect]
     Indication: TYPE 2 DIABETES MELLITUS
     Dosage: 5 UG, SUBCUTANEOUS
     Route: 058
     Dates: start: 20071127
  2. GLYBURIDE [Concomitant]
  3. GLUCOPHAGE [Concomitant]
  4. ACTOS (PIOGLITAZONE UNKNOWN FORMULATION) [Concomitant]
  5. DRUG USED IN DIABETES [Concomitant]

REACTIONS (3)
  - BLOOD GLUCOSE DECREASED [None]
  - BLOOD GLUCOSE INCREASED [None]
  - TREMOR [None]
